FAERS Safety Report 5590244-8 (Version None)
Quarter: 2007Q4

REPORT INFORMATION
  Report Type: 
  Country: None (occurrence: None)
  Receive Date: 20071217
  Receipt Date: 20070829
  Transmission Date: 20080405
  Serious: No
  Sender: FDA-Public Use
  Company Number: BDI-010131

PATIENT

DRUGS (1)
  1. MULTIHANCE [Suspect]
     Indication: NUCLEAR MAGNETIC RESONANCE IMAGING BRAIN
     Dosage: 19 ML ONCE IV
     Route: 042
     Dates: start: 20070802, end: 20070802

REACTIONS (3)
  - EYE PRURITUS [None]
  - OCULAR HYPERAEMIA [None]
  - PARAESTHESIA ORAL [None]
